FAERS Safety Report 11864065 (Version 1)
Quarter: 2015Q4

REPORT INFORMATION
  Report Type: Report from Study
  Country: US (occurrence: US)
  Receive Date: 20151223
  Receipt Date: 20151223
  Transmission Date: 20160305
  Serious: Yes (Hospitalization, Other)
  Sender: FDA-Public Use
  Company Number: US-009507513-1512USA010972

PATIENT
  Age: 18 Year
  Sex: Male
  Weight: 108.98 kg

DRUGS (18)
  1. IFOSFAMIDE. [Suspect]
     Active Substance: IFOSFAMIDE
     Dosage: UNK, CYCLICAL, OVER 60 MIN ON DAY 1-5
     Route: 042
     Dates: start: 20150912
  2. HYDROCORTISONE ACETATE. [Suspect]
     Active Substance: HYDROCORTISONE ACETATE
     Dosage: UNK
     Dates: start: 20150903, end: 20150903
  3. CRIZOTINIB [Suspect]
     Active Substance: CRIZOTINIB
     Dosage: 250 MG, TOTAL DOSE ADMINISTERED WAS 7250 MG, CYCLIC (2XDAY) ON DAY 1-21 (COURSE A, B)
     Route: 048
     Dates: start: 20150910, end: 20151013
  4. DOXORUBICIN HYDROCHLORIDE. [Suspect]
     Active Substance: DOXORUBICIN HYDROCHLORIDE
     Indication: ANAPLASTIC LARGE CELL LYMPHOMA T- AND NULL-CELL TYPES
     Dosage: TOTAL DOSE ADMINISTERED: 120 MG,  CYCLIC, ON DAYS 4 AND 5
     Route: 042
     Dates: start: 20151002, end: 20151003
  5. CYCLOPHOSPHAMIDE. [Suspect]
     Active Substance: CYCLOPHOSPHAMIDE
     Dosage: TOTAL DOSE ADMINISTERED WAS 2350MG,CYCLICAL
     Route: 042
     Dates: start: 20150929, end: 20151003
  6. METHOTREXATE [Suspect]
     Active Substance: METHOTREXATE
     Indication: ANAPLASTIC LARGE CELL LYMPHOMA T- AND NULL-CELL TYPES
     Dosage: UNK, CYCLICAL, (ON DAY 1 PRO-PHASE)
     Route: 037
     Dates: start: 20150903, end: 20150929
  7. IFOSFAMIDE. [Suspect]
     Active Substance: IFOSFAMIDE
     Indication: ANAPLASTIC LARGE CELL LYMPHOMA T- AND NULL-CELL TYPES
     Dosage: TOTAL DOSE ADMINISTERED WAS 9350 MG, CYCLICAL, OVER 60 MIN ON DAY 1-5
     Route: 042
     Dates: start: 20150908, end: 20150912
  8. METHOTREXATE [Suspect]
     Active Substance: METHOTREXATE
     Dosage: TOTAL DOSE ADMINISTERED: 7080 MG, CYCLICAL
     Route: 037
     Dates: start: 20150929, end: 20150929
  9. CRIZOTINIB [Suspect]
     Active Substance: CRIZOTINIB
     Indication: ANAPLASTIC LARGE CELL LYMPHOMA T- AND NULL-CELL TYPES
     Dosage: 250 MG, TOTAL DOSE ADMINISTERED WAS 7250 MG, CYCLIC (2XDAY) ON DAY 1-21 (COURSE A, B)
     Route: 048
     Dates: start: 20150908, end: 20151010
  10. CYTARABINE. [Suspect]
     Active Substance: CYTARABINE
     Dosage: (TOTAL DOSE ADMINISTERED WAS 1400 MG, CYCLIC, OVER 1-30 MINUTES EVERY 12 HOURS ON DAYS 4,5
     Route: 042
     Dates: start: 20150911, end: 20150913
  11. CYTARABINE. [Suspect]
     Active Substance: CYTARABINE
     Dosage: UNK, CYCLICAL, (ON DAY 1, PRO-PHASE)
     Route: 042
     Dates: start: 20150913
  12. METHOTREXATE [Suspect]
     Active Substance: METHOTREXATE
     Dosage: UNK, CYCLIC, OVER 3 HOURS
     Route: 042
     Dates: start: 20150929
  13. DEXAMETHASONE. [Suspect]
     Active Substance: DEXAMETHASONE
     Indication: ANAPLASTIC LARGE CELL LYMPHOMA T- AND NULL-CELL TYPES
     Dosage: UNK, CYCLICAL (PROPHASE, COURSE A, B)
     Route: 048
     Dates: start: 20150903, end: 20150929
  14. DEXAMETHASONE. [Suspect]
     Active Substance: DEXAMETHASONE
     Dosage: TOTAL DOSE ADMINISTERED: 120MG
     Route: 048
     Dates: start: 20150929, end: 20151003
  15. CYTARABINE. [Suspect]
     Active Substance: CYTARABINE
     Indication: ANAPLASTIC LARGE CELL LYMPHOMA T- AND NULL-CELL TYPES
     Dosage: UNK, CYCLICAL, (ON DAY 1, PRO-PHASE)
     Route: 042
     Dates: start: 20150903
  16. DOXORUBICIN HYDROCHLORIDE. [Suspect]
     Active Substance: DOXORUBICIN HYDROCHLORIDE
     Dosage: TOTAL DOSE ADMINISTERED: 120 MG,  CYCLIC, ON DAYS 4 AND 5
     Route: 042
     Dates: start: 20151003
  17. CYCLOPHOSPHAMIDE. [Suspect]
     Active Substance: CYCLOPHOSPHAMIDE
     Indication: ANAPLASTIC LARGE CELL LYMPHOMA T- AND NULL-CELL TYPES
     Dosage: UNK, CYCLIC (PROPHASE, COURSE B)
     Route: 042
     Dates: start: 20150903, end: 20150929
  18. VP-16 [Suspect]
     Active Substance: ETOPOSIDE
     Dosage: UNK
     Dates: start: 20150911, end: 20150912

REACTIONS (7)
  - Hypokalaemia [Recovered/Resolved]
  - Pleural effusion [Unknown]
  - Vomiting [Recovered/Resolved]
  - Enterocolitis [Recovered/Resolved]
  - Lung infection [Recovered/Resolved]
  - Nausea [Recovered/Resolved]
  - Stomatitis [Recovered/Resolved]

NARRATIVE: CASE EVENT DATE: 20151007
